FAERS Safety Report 24205641 (Version 1)
Quarter: 2024Q3

REPORT INFORMATION
  Report Type: Spontaneous
  Country: IN (occurrence: IN)
  Receive Date: 20240813
  Receipt Date: 20240813
  Transmission Date: 20241017
  Serious: Yes (Other)
  Sender: EPIC PHARM
  Company Number: IN-EPICPHARMA-IN-2024EPCLIT00933

PATIENT
  Age: 24 Year
  Sex: Male

DRUGS (1)
  1. DICLOFENAC SODIUM [Suspect]
     Active Substance: DICLOFENAC\DICLOFENAC SODIUM
     Indication: Product used for unknown indication
     Route: 013

REACTIONS (4)
  - Gangrene [Recovered/Resolved]
  - Peripheral sensory neuropathy [Recovered/Resolved]
  - Rash erythematous [Recovered/Resolved]
  - Product administration error [Unknown]
